FAERS Safety Report 16248211 (Version 1)
Quarter: 2019Q2

REPORT INFORMATION
  Report Type: Spontaneous
  Country: US (occurrence: US)
  Receive Date: 20190428
  Receipt Date: 20190428
  Transmission Date: 20190711
  Serious: No
  Sender: FDA-Public Use
  Company Number: US-SENTYNL THERAPEUTICS, INC.  -2066355

PATIENT
  Age: 77 Year
  Sex: Male

DRUGS (6)
  1. SIMVASTATIN. [Concomitant]
     Active Substance: SIMVASTATIN
  2. TIZANIDINE. [Concomitant]
     Active Substance: TIZANIDINE
  3. LEVORPHANOL TARTRATE. [Suspect]
     Active Substance: LEVORPHANOL TARTRATE
     Indication: PAIN
     Route: 048
     Dates: start: 20181017, end: 20181025
  4. VERAPAMIL [Concomitant]
     Active Substance: VERAPAMIL HYDROCHLORIDE
  5. CARVEDILOL. [Concomitant]
     Active Substance: CARVEDILOL
  6. AMLODIPINE [Concomitant]
     Active Substance: AMLODIPINE BESYLATE

REACTIONS (1)
  - Drug ineffective [Not Recovered/Not Resolved]
